FAERS Safety Report 15736539 (Version 1)
Quarter: 2018Q4

REPORT INFORMATION
  Report Type: Spontaneous
  Country: US (occurrence: US)
  Receive Date: 20181218
  Receipt Date: 20181218
  Transmission Date: 20190205
  Serious: No
  Sender: FDA-Public Use
  Company Number: US-HORIZON-PEN-1382-2018

PATIENT
  Age: 66 Year
  Sex: Female

DRUGS (17)
  1. VITAMIN C [Concomitant]
     Active Substance: ASCORBIC ACID
  2. TIZANIDINE. [Concomitant]
     Active Substance: TIZANIDINE
  3. FLUTICASONE. [Concomitant]
     Active Substance: FLUTICASONE
     Route: 045
  4. CITRUCEL [Concomitant]
     Active Substance: METHYLCELLULOSE (4000 MPA.S)
  5. POTASSIUM [Concomitant]
     Active Substance: POTASSIUM
  6. ZAFIRLUKAST. [Concomitant]
     Active Substance: ZAFIRLUKAST
  7. BIOTIN [Concomitant]
     Active Substance: BIOTIN
  8. RESTORA [Concomitant]
  9. CETIRIZINE [Concomitant]
     Active Substance: CETIRIZINE HYDROCHLORIDE
  10. OMEPRAZOLE. [Concomitant]
     Active Substance: OMEPRAZOLE
  11. DICYCLOMINE [Concomitant]
     Active Substance: DICYCLOMINE HYDROCHLORIDE
  12. ESZOPICLONE. [Concomitant]
     Active Substance: ESZOPICLONE
  13. SYMBICORT [Concomitant]
     Active Substance: BUDESONIDE\FORMOTEROL FUMARATE DIHYDRATE
  14. OLMESARTAN-AMLODIPINE-HYDROCHLOROTHIAZIDE [Concomitant]
  15. PENNSAID [Suspect]
     Active Substance: DICLOFENAC SODIUM
     Indication: ARTHRITIS
     Dosage: 1-2 PUMPS BID
     Dates: start: 20181127
  16. RANITIDINE. [Concomitant]
     Active Substance: RANITIDINE
  17. TRAMADOL. [Concomitant]
     Active Substance: TRAMADOL

REACTIONS (4)
  - Off label use [Unknown]
  - Device defective [Unknown]
  - Pain in extremity [Unknown]
  - Therapy cessation [Unknown]

NARRATIVE: CASE EVENT DATE: 20181127
